FAERS Safety Report 8139045-7 (Version None)
Quarter: 2012Q1

REPORT INFORMATION
  Report Type: 
  Country: None (occurrence: None)
  Receive Date: 20120215
  Receipt Date: 20120206
  Transmission Date: 20120608
  Serious: Yes (Other)
  Sender: FDA-Public Use
  Company Number: CA-B.I. PHARMACEUTICALS,INC./RIDGEFIELD-2012-CN-00182CN

PATIENT
  Age: 44 Year
  Sex: Male

DRUGS (7)
  1. DAPSONE [Concomitant]
  2. LAMIVUDINE (EPIVIR HBV) [Concomitant]
  3. NORVIR [Suspect]
     Dosage: 200 MG
     Route: 048
  4. LEUCOVORIN CALCIUM [Concomitant]
  5. TIPRANAVIR + RITONAVIR CO-ADMIN [Suspect]
     Dosage: 1000 MG
     Route: 065
  6. VFEND [Concomitant]
  7. DIDANOSINE [Concomitant]

REACTIONS (2)
  - ACNE [None]
  - RASH PAPULAR [None]
